FAERS Safety Report 8906647 (Version 2)
Quarter: 2013Q1

REPORT INFORMATION
  Report Type: Report from Study
  Country: US (occurrence: US)
  Receive Date: 20121114
  Receipt Date: 20130121
  Transmission Date: 20140127
  Serious: Yes (Hospitalization)
  Sender: FDA-Public Use
  Company Number: US-JNJFOC-20121105055

PATIENT
  Age: 18 Year
  Sex: Female
  Weight: 42.3 kg

DRUGS (2)
  1. APAP [Suspect]
     Route: 048
  2. APAP [Suspect]
     Indication: MIGRAINE
     Route: 048

REACTIONS (5)
  - Intentional overdose [Recovered/Resolved]
  - Self injurious behaviour [Recovered/Resolved]
  - Transaminases increased [Recovered/Resolved]
  - Vomiting [Recovered/Resolved]
  - Blood bilirubin increased [Recovered/Resolved]
